FAERS Safety Report 17285260 (Version 1)
Quarter: 2020Q1

REPORT INFORMATION
  Report Type: Spontaneous
  Country: US (occurrence: US)
  Receive Date: 20200117
  Receipt Date: 20200117
  Transmission Date: 20200409
  Serious: No
  Sender: FDA-Public Use
  Company Number: US-ELI_LILLY_AND_COMPANY-US202001002148

PATIENT
  Age: 99 Year
  Sex: Female

DRUGS (1)
  1. TALTZ [Suspect]
     Active Substance: IXEKIZUMAB
     Indication: PSORIATIC ARTHROPATHY
     Dosage: UNK, 2/M
     Route: 065

REACTIONS (6)
  - Psoriasis [Unknown]
  - Eyelid irritation [Unknown]
  - Oral discomfort [Unknown]
  - Lip swelling [Unknown]
  - Hypoacusis [Unknown]
  - Lip erythema [Unknown]

NARRATIVE: CASE EVENT DATE: 20200101
